FAERS Safety Report 18335481 (Version 1)
Quarter: 2020Q4

REPORT INFORMATION
  Report Type: Spontaneous
  Country: US (occurrence: US)
  Receive Date: 20201001
  Receipt Date: 20201001
  Transmission Date: 20210113
  Serious: No
  Sender: FDA-Public Use
  Company Number: US-FRESENIUS KABI-FK202009789

PATIENT
  Age: 55 Year
  Sex: Male
  Weight: 96 kg

DRUGS (14)
  1. POTASSIUM CHLORIDE FOR INJECTION CONCENTRATE, USP [Suspect]
     Active Substance: POTASSIUM CHLORIDE
     Indication: CARDIOPLEGIA
     Dosage: 24 MEQ
     Route: 065
     Dates: start: 20200918, end: 20200918
  2. METOPROLOL. [Concomitant]
     Active Substance: METOPROLOL
  3. ACETYLSALICYLIC ACID [Concomitant]
     Active Substance: ASPIRIN
  4. VITAMIN E NOS [Concomitant]
     Active Substance: .ALPHA.-TOCOPHEROL
  5. HEPARIN [Concomitant]
     Active Substance: HEPARIN SODIUM
     Route: 041
  6. ATORVASTATIN [Concomitant]
     Active Substance: ATORVASTATIN
  7. CEFAZOLIN [Concomitant]
     Active Substance: CEFAZOLIN
  8. ASCORBIC ACID. [Concomitant]
     Active Substance: ASCORBIC ACID
  9. PARACETAMOL [Concomitant]
     Active Substance: ACETAMINOPHEN
  10. LISINOPRIL. [Concomitant]
     Active Substance: LISINOPRIL
  11. FUROSEMIDE. [Concomitant]
     Active Substance: FUROSEMIDE
  12. PANTOPRAZOLE [Concomitant]
     Active Substance: PANTOPRAZOLE
  13. PARACETAMOL/HYDROCODONE BITARTRATE [Concomitant]
     Active Substance: ACETAMINOPHEN\HYDROCODONE BITARTRATE
  14. CLOPIDOGREL [Concomitant]
     Active Substance: CLOPIDOGREL BISULFATE

REACTIONS (2)
  - Drug ineffective [Unknown]
  - Off label use [Unknown]
